FAERS Safety Report 6490383-3 (Version None)
Quarter: 2009Q4

REPORT INFORMATION
  Report Type: 
  Country: None (occurrence: None)
  Receive Date: 20091211
  Receipt Date: 20091201
  Transmission Date: 20100525
  Serious: No
  Sender: FDA-Public Use
  Company Number: B0611833A

PATIENT
  Age: 9 Year
  Sex: Female

DRUGS (1)
  1. RELENZA [Suspect]
     Indication: INFLUENZA
     Route: 055
     Dates: start: 20091128, end: 20091128

REACTIONS (2)
  - NO ADVERSE EVENT [None]
  - OVERDOSE [None]
